FAERS Safety Report 8130292-7 (Version None)
Quarter: 2012Q1

REPORT INFORMATION
  Report Type: 
  Country: None (occurrence: None)
  Receive Date: 20120210
  Receipt Date: 20120207
  Transmission Date: 20120608
  Serious: Yes (Hospitalization, Other)
  Sender: FDA-Public Use
  Company Number: PHHO2010DE020165

PATIENT
  Sex: Male
  Weight: 83.3 kg

DRUGS (16)
  1. RANITIDINE [Concomitant]
     Indication: GASTRITIS PROPHYLAXIS
  2. IBUPROFEN [Concomitant]
  3. HOMEOPATHIC PREPARATIONS [Concomitant]
     Indication: PROPHYLAXIS
  4. FTY [Suspect]
     Dosage: NO TREATMENT
     Dates: start: 20081114, end: 20090607
  5. FTY [Suspect]
     Dosage: 1.25 MG
     Route: 048
     Dates: start: 20090608
  6. SODIUM CARBONATE [Concomitant]
     Indication: DYSPEPSIA
     Dosage: UNK
     Dates: start: 20100411, end: 20100413
  7. MEPIVACAINE HCL [Concomitant]
     Indication: LOCAL ANAESTHESIA
  8. HEPARIN-FRACTION, CALCIUM SALT [Concomitant]
     Indication: THROMBOSIS PROPHYLAXIS
  9. HERBAL OIL NOS [Concomitant]
  10. INFLUENZA VIRUS VACCINE [Concomitant]
     Indication: PROPHYLAXIS
  11. MAGALDRATE [Concomitant]
     Indication: DYSPEPSIA
     Dosage: UNK
     Dates: start: 20100414, end: 20100415
  12. MAGNESIUM [Concomitant]
     Indication: SUPPLEMENTATION THERAPY
  13. FTY [Suspect]
     Indication: MULTIPLE SCLEROSIS
     Dosage: 1.25MG
     Route: 048
     Dates: start: 20080912, end: 20081113
  14. FTY [Suspect]
     Dosage: 0.5 MG
     Dates: start: 20100325, end: 20100414
  15. RIOPAN [Concomitant]
     Indication: DYSPEPSIA
  16. AMANTADINE HCL [Concomitant]
     Indication: FATIGUE

REACTIONS (14)
  - YELLOW SKIN [None]
  - FATIGUE [None]
  - DECREASED APPETITE [None]
  - HEPATIC ENZYME INCREASED [None]
  - ALPHA-1 ANTI-TRYPSIN DECREASED [None]
  - ABDOMINAL PAIN [None]
  - PAIN IN EXTREMITY [None]
  - INFLUENZA LIKE ILLNESS [None]
  - URINE COLOUR ABNORMAL [None]
  - EPIGASTRIC DISCOMFORT [None]
  - SPLENOMEGALY [None]
  - JAUNDICE [None]
  - FAECES PALE [None]
  - HEPATITIS E [None]
